FAERS Safety Report 8262070-2 (Version None)
Quarter: 2012Q2

REPORT INFORMATION
  Report Type: 
  Country: None (occurrence: None)
  Receive Date: 20120405
  Receipt Date: 20120403
  Transmission Date: 20120825
  Serious: Yes (Death, Hospitalization, Other)
  Sender: FDA-Public Use
  Company Number: PHHY2012FR026538

PATIENT
  Age: 83 Year
  Sex: Female

DRUGS (7)
  1. ONBREZ [Suspect]
     Indication: CHRONIC OBSTRUCTIVE PULMONARY DISEASE
     Dosage: UNK
     Dates: start: 20120101
  2. FLECAINIDE ACETATE [Concomitant]
  3. LERCANIDIPINE [Concomitant]
  4. ESOMEPRAZOLE [Concomitant]
  5. ONBREZ [Suspect]
     Indication: ASTHMA
  6. ASPIRIN [Concomitant]
  7. ESCITALOPRAM [Concomitant]

REACTIONS (7)
  - FACE OEDEMA [None]
  - MALAISE [None]
  - HYPERSENSITIVITY [None]
  - RESPIRATORY DISORDER [None]
  - CARDIAC FAILURE [None]
  - DEATH [None]
  - DYSPNOEA [None]
